FAERS Safety Report 21192805 (Version 2)
Quarter: 2023Q2

REPORT INFORMATION
  Report Type: Spontaneous
  Country: FR (occurrence: FR)
  Receive Date: 20220810
  Receipt Date: 20230630
  Transmission Date: 20230722
  Serious: Yes (Hospitalization)
  Sender: FDA-Public Use
  Company Number: FR-SUN PHARMACEUTICAL INDUSTRIES LTD-2022RR-348165

PATIENT
  Age: 41 Year
  Sex: Male
  Weight: 46 kg

DRUGS (1)
  1. OLANZAPINE [Suspect]
     Active Substance: OLANZAPINE
     Indication: Anxiety disorder
     Dosage: 20 MG OVER 15 DAYS, 25 MG FOR 2 DAYS
     Route: 048
     Dates: start: 201201, end: 20220618

REACTIONS (1)
  - Neuroleptic malignant syndrome [Recovered/Resolved]

NARRATIVE: CASE EVENT DATE: 20220618
